FAERS Safety Report 7120591-X (Version None)
Quarter: 2010Q4

REPORT INFORMATION
  Report Type: 
  Country: None (occurrence: None)
  Receive Date: 20101122
  Receipt Date: 20101122
  Transmission Date: 20110411
  Serious: Yes (Other)
  Sender: FDA-Public Use
  Company Number: None

PATIENT
  Sex: Female
  Weight: 41.7309 kg

DRUGS (2)
  1. RECLAST [Suspect]
     Dosage: YEARLY (2009 - LAST DOSE)
     Dates: start: 20060101
  2. RECLAST [Suspect]
     Dosage: YEARLY (2009 - LAST DOSE)
     Dates: start: 20090101

REACTIONS (11)
  - BONE DENSITY DECREASED [None]
  - CONSTIPATION [None]
  - DYSGEUSIA [None]
  - EAR PAIN [None]
  - HAEMATOCHEZIA [None]
  - HEADACHE [None]
  - HYPERSENSITIVITY [None]
  - INFUSION RELATED REACTION [None]
  - PAIN IN JAW [None]
  - TOOTH DISORDER [None]
  - TOOTH LOSS [None]
